FAERS Safety Report 9271099 (Version 3)
Quarter: 2013Q2

REPORT INFORMATION
  Report Type: Spontaneous
  Country: AR (occurrence: AR)
  Receive Date: 20130506
  Receipt Date: 20130530
  Transmission Date: 20140414
  Serious: Yes (Death, Life-Threatening, Hospitalization, Other)
  Sender: FDA-Public Use
  Company Number: AR-JNJFOC-20130416550

PATIENT
  Age: 73 Year
  Sex: Female
  Weight: 63 kg

DRUGS (5)
  1. INFLIXIMAB, RECOMBINANT [Suspect]
     Indication: RHEUMATOID ARTHRITIS
     Route: 042
     Dates: start: 20110208
  2. INFLIXIMAB, RECOMBINANT [Suspect]
     Indication: RHEUMATOID ARTHRITIS
     Route: 042
     Dates: start: 20110222, end: 20110222
  3. METHOTREXATE [Concomitant]
     Indication: RHEUMATOID ARTHRITIS
     Dosage: DOSE: 15-20 MG
     Route: 065
     Dates: start: 20100402, end: 20110226
  4. FOLIC ACID [Concomitant]
     Route: 065
     Dates: start: 20100402
  5. ENALAPRIL [Concomitant]
     Indication: HYPERTENSION
     Route: 065
     Dates: start: 2007

REACTIONS (4)
  - Leukocytoclastic vasculitis [Fatal]
  - Cellulitis [Fatal]
  - Raynaud^s phenomenon [Unknown]
  - Tenosynovitis [Fatal]
